FAERS Safety Report 5798006-3 (Version None)
Quarter: 2008Q3

REPORT INFORMATION
  Report Type: 
  Country: None (occurrence: None)
  Receive Date: 20080702
  Receipt Date: 20060517
  Transmission Date: 20090109
  Serious: Yes (Death)
  Sender: FDA-Public Use
  Company Number: B0424391A

PATIENT
  Age: 20 Year
  Sex: Male
  Weight: 80 kg

DRUGS (6)
  1. HALFAN [Suspect]
     Dosage: 2TAB SEE DOSAGE TEXT
     Route: 048
     Dates: start: 20060205, end: 20060205
  2. CEFTRIAXONE [Concomitant]
     Indication: LOWER RESPIRATORY TRACT INFECTION
     Dosage: 1G PER DAY
     Route: 042
     Dates: start: 20060205, end: 20060205
  3. NOVALGIN [Concomitant]
     Indication: PAIN
     Route: 042
     Dates: start: 20060205, end: 20060205
  4. AFEBRIL [Concomitant]
     Route: 065
     Dates: start: 20060206
  5. LEVOFLOXACIN [Concomitant]
     Dosage: 250MG UNKNOWN
     Route: 065
     Dates: start: 20060206
  6. PONSTAN FORTE [Concomitant]
     Route: 048
     Dates: start: 20060206

REACTIONS (3)
  - CONVULSION [None]
  - FOAMING AT MOUTH [None]
  - SYNCOPE [None]
